FAERS Safety Report 25936937 (Version 1)
Quarter: 2025Q4

REPORT INFORMATION
  Report Type: Spontaneous
  Country: CN (occurrence: CN)
  Receive Date: 20251017
  Receipt Date: 20251017
  Transmission Date: 20260118
  Serious: Yes (Hospitalization)
  Sender: MERCK SHARP & DOHME LLC
  Company Number: CN-009507513-2340569

PATIENT
  Age: 38 Year
  Sex: Female
  Weight: 48 kg

DRUGS (4)
  1. CILASTATIN SODIUM\IMIPENEM [Suspect]
     Active Substance: CILASTATIN SODIUM\IMIPENEM
     Indication: Localised infection
     Dosage: 1G, TWICE DAILY
     Route: 041
     Dates: start: 20251002, end: 20251009
  2. VANCOMYCIN HYDROCHLORIDE [Suspect]
     Active Substance: VANCOMYCIN HYDROCHLORIDE
     Indication: Localised infection
     Dosage: 0.72G, ONCE DAILY
     Route: 041
     Dates: start: 20251002, end: 20251009
  3. SODIUM CHLORIDE [Concomitant]
     Active Substance: SODIUM CHLORIDE
     Indication: Medication dilution
     Dosage: 100ML, TWICE DAILY
     Route: 041
     Dates: start: 20251002, end: 20251009
  4. SODIUM CHLORIDE [Concomitant]
     Active Substance: SODIUM CHLORIDE
     Indication: Medication dilution
     Dosage: 150ML, ONCE DAILY
     Route: 041
     Dates: start: 20251002, end: 20251009

REACTIONS (2)
  - Rash pruritic [Recovering/Resolving]
  - Drug eruption [Recovering/Resolving]

NARRATIVE: CASE EVENT DATE: 20251006
